FAERS Safety Report 5199461-2 (Version None)
Quarter: 2006Q4

REPORT INFORMATION
  Report Type: 
  Country: None (occurrence: None)
  Receive Date: 20061229
  Receipt Date: 20061219
  Transmission Date: 20070319
  Serious: Yes (Other)
  Sender: FDA-Public Use
  Company Number: 2006SP008771

PATIENT
  Sex: Female

DRUGS (1)
  1. NASONEX [Suspect]
     Indication: DRUG USE FOR UNKNOWN INDICATION
     Dosage: 50 MCG, QD; NAS
     Route: 045

REACTIONS (6)
  - ADRENAL NEOPLASM [None]
  - BLOOD CORTICOTROPHIN DECREASED [None]
  - BLOOD CORTISOL DECREASED [None]
  - DRUG INEFFECTIVE [None]
  - FALSE POSITIVE LABORATORY RESULT [None]
  - LABORATORY TEST INTERFERENCE [None]
